FAERS Safety Report 17940079 (Version 1)
Quarter: 2020Q2

REPORT INFORMATION
  Report Type: Spontaneous
  Country: DE (occurrence: DE)
  Receive Date: 20200625
  Receipt Date: 20200625
  Transmission Date: 20200714
  Serious: Yes (Hospitalization, Other)
  Sender: FDA-Public Use
  Company Number: DE-SA-2020SA156728

PATIENT

DRUGS (18)
  1. ZOLPIDEM TARTRATE. [Suspect]
     Active Substance: ZOLPIDEM TARTRATE
     Dosage: 5 MG, QD, (5 MG, 0-0-0-1)
     Route: 065
  2. LACTULOSE. [Concomitant]
     Active Substance: LACTULOSE
     Dosage: UNK
     Route: 065
  3. ULTIBRO BREEZHALER [Concomitant]
     Active Substance: GLYCOPYRRONIUM\INDACATEROL
     Dosage: 85|43 MG, 1-0-0-0
     Route: 065
  4. THIAMAZOL [Concomitant]
     Active Substance: METHIMAZOLE
     Dosage: 5 MG
     Route: 065
  5. APIXABAN [Concomitant]
     Active Substance: APIXABAN
     Dosage: 2.5 MG, BID, 2.5 MG, 1-0-1-0
     Route: 065
  6. DULCOLAX (BISACODYL) [Concomitant]
     Active Substance: BISACODYL
     Dosage: 0-0-1-0
     Route: 065
  7. VENLAFAXIN [Concomitant]
     Active Substance: VENLAFAXINE HYDROCHLORIDE
     Dosage: 150 MG, 0.5-0-0-0
     Route: 065
  8. PREDNISOLON [PREDNISONE] [Concomitant]
     Dosage: 5 MG, 1.5-0-0-0
     Route: 065
  9. METAMIZOL [Concomitant]
     Active Substance: METAMIZOLE SODIUM
     Dosage: 500 MG
     Route: 065
  10. TAMSULOSIN [Concomitant]
     Active Substance: TAMSULOSIN
     Dosage: 0.4 MG, QD, 0.4 MG, 0-0-1-0
     Route: 065
  11. VITAMIN D [COLECALCIFEROL] [Concomitant]
     Active Substance: CHOLECALCIFEROL
     Dosage: 1000 IE, 1-0-0-0
     Route: 065
  12. BISOPROLOL [Concomitant]
     Active Substance: BISOPROLOL
     Dosage: 2.5 MG, QD (2.5 MG, 1-0-0-0)
     Route: 065
  13. FENTANYL. [Suspect]
     Active Substance: FENTANYL
     Dosage: 25 UG
     Route: 065
  14. FOLIC ACID. [Concomitant]
     Active Substance: FOLIC ACID
     Dosage: 0.4 MG, QD, 0.4 MG, 0-1-0-0
     Route: 065
  15. BICALUTAMID [Concomitant]
     Active Substance: BICALUTAMIDE
     Dosage: 150 MG, QD (150 MG, 1-0-0-0)
     Route: 065
  16. TORASEMID [Concomitant]
     Active Substance: TORSEMIDE
     Dosage: 10 MG, 2-1-0-0
     Route: 065
  17. KALINOR-RETARD [Concomitant]
     Dosage: 1-1-0-0
     Route: 065
  18. TIM-OPHTAL [Concomitant]
     Active Substance: TIMOLOL MALEATE
     Dosage: 1-0-1-0
     Route: 047

REACTIONS (9)
  - Dyspnoea [Unknown]
  - Musculoskeletal pain [Unknown]
  - Dizziness [Unknown]
  - Wound [Unknown]
  - General physical health deterioration [Unknown]
  - Fall [Unknown]
  - Arrhythmia [Unknown]
  - Oedema peripheral [Unknown]
  - Muscular weakness [Unknown]
